FAERS Safety Report 8478081 (Version 3)
Quarter: 2013Q4

REPORT INFORMATION
  Report Type: Spontaneous
  Country: TR (occurrence: TR)
  Receive Date: 20120327
  Receipt Date: 20131016
  Transmission Date: 20140711
  Serious: Yes (Hospitalization, Other)
  Sender: FDA-Public Use
  Company Number: TR-AMGEN-TURSP2012017380

PATIENT
  Age: 34 Year
  Sex: Female

DRUGS (3)
  1. ENBREL [Suspect]
     Indication: ANKYLOSING SPONDYLITIS
     Dosage: 25 MG, 2X/WEEK
     Route: 058
     Dates: start: 20080801
  2. ENBREL [Suspect]
     Dosage: 25 MG, 2 TIMES/WK
     Route: 058
  3. ENBREL [Suspect]
     Dosage: UNK
     Route: 058
     Dates: start: 20110821

REACTIONS (4)
  - Pain [Recovered/Resolved]
  - Fibrocystic breast disease [Recovering/Resolving]
  - Tooth infection [Not Recovered/Not Resolved]
  - Injection site pain [Unknown]
